FAERS Safety Report 7944770-4 (Version None)
Quarter: 2011Q4

REPORT INFORMATION
  Report Type: 
  Country: None (occurrence: None)
  Receive Date: 20111129
  Receipt Date: 20111124
  Transmission Date: 20120403
  Serious: Yes (Hospitalization)
  Sender: FDA-Public Use
  Company Number: JP-PFIZER INC-2011287948

PATIENT
  Age: 62 Year
  Sex: Male
  Weight: 61 kg

DRUGS (10)
  1. SUNITINIB MALATE [Suspect]
     Indication: RENAL CELL CARCINOMA
     Dosage: 50 MG, 1X/DAY
     Route: 048
     Dates: start: 20090109
  2. SUNITINIB MALATE [Suspect]
     Dosage: 37.5 MG, 1X/DAY
     Route: 048
     Dates: start: 20091030
  3. SUNITINIB MALATE [Suspect]
     Dosage: 37.5 MG, 1X/DAY
     Route: 048
     Dates: start: 20090626, end: 20090722
  4. SUNITINIB MALATE [Suspect]
     Dosage: 37.5 MG, 1X/DAY
     Route: 048
     Dates: start: 20090807, end: 20090828
  5. SUNITINIB MALATE [Suspect]
     Dosage: 37.5 MG, 1X/DAY
     Route: 048
     Dates: start: 20100121
  6. SUNITINIB MALATE [Suspect]
     Dosage: 37.5 MG, 1X/DAY
     Route: 048
     Dates: start: 20100304
  7. SUNITINIB MALATE [Suspect]
     Dosage: 37.5 MG, 1X/DAY
     Route: 048
     Dates: start: 20091210, end: 20100108
  8. SUNITINIB MALATE [Suspect]
     Dosage: 37.5 MG, 1X/DAY
     Route: 048
  9. SUNITINIB MALATE [Suspect]
     Dosage: 37.5 MG, 1X/DAY
     Dates: start: 20090919
  10. SUNITINIB MALATE [Suspect]
     Dosage: 37.5 MG, 1X/DAY
     Route: 048
     Dates: start: 20100415, end: 20100506

REACTIONS (1)
  - PNEUMONIA BACTERIAL [None]
